FAERS Safety Report 19614522 (Version 11)
Quarter: 2025Q3

REPORT INFORMATION
  Report Type: Spontaneous
  Country: US (occurrence: US)
  Receive Date: 20210727
  Receipt Date: 20250718
  Transmission Date: 20251020
  Serious: Yes (Other)
  Sender: PFIZER
  Company Number: US-PFIZER INC-2017031811

PATIENT
  Age: 24 Year
  Sex: Male

DRUGS (5)
  1. BENEFIX [Suspect]
     Active Substance: COAGULATION FACTOR IX RECOMBINANT HUMAN\ISOPROPYL ALCOHOL
     Indication: Haemorrhage
     Dosage: 5000 UNITS INTO THE VEIN DAILY DISP-150
     Route: 042
     Dates: start: 20170118
  2. BENEFIX [Suspect]
     Active Substance: COAGULATION FACTOR IX RECOMBINANT HUMAN\ISOPROPYL ALCOHOL
     Dosage: 5000 UNITS INTO THE VEIN DAILY DISP-30
     Route: 042
     Dates: start: 20170509
  3. BENEFIX [Suspect]
     Active Substance: COAGULATION FACTOR IX RECOMBINANT HUMAN\ISOPROPYL ALCOHOL
     Dosage: 4000 UNITS PLUS 10% INTO VEIN FOR BLEEDING DAILY UPTO 7 DAYS DISP-30
     Route: 042
     Dates: start: 20170511
  4. BENEFIX [Suspect]
     Active Substance: COAGULATION FACTOR IX RECOMBINANT HUMAN\ISOPROPYL ALCOHOL
     Dosage: INFUSE 2 (2000 IU) TO TOTAL 4,000 IU (+/-10%) IV DAILY FOR BLEEDING UP TO 7 DAYS)
     Route: 042
  5. BENEFIX [Suspect]
     Active Substance: COAGULATION FACTOR IX RECOMBINANT HUMAN\ISOPROPYL ALCOHOL
     Route: 042

REACTIONS (2)
  - Hernia [Unknown]
  - Haemorrhage [Unknown]
